FAERS Safety Report 6152007-4 (Version None)
Quarter: 2009Q2

REPORT INFORMATION
  Report Type: 
  Country: None (occurrence: None)
  Receive Date: 20090409
  Receipt Date: 20090409
  Transmission Date: 20091009
  Serious: Yes (Hospitalization)
  Sender: FDA-Public Use
  Company Number: None

PATIENT
  Sex: Female
  Weight: 52.1637 kg

DRUGS (2)
  1. RECLAST [Suspect]
     Indication: OSTEOPOROSIS
     Dosage: 1/2 DOSE 2 TIMES IV DRIP; 1 DOSE? 2 TIMES? IV DRIP
     Route: 041
     Dates: start: 20090227, end: 20090227
  2. RECLAST [Suspect]
     Indication: OSTEOPOROSIS
     Dosage: 1/2 DOSE 2 TIMES IV DRIP; 1 DOSE? 2 TIMES? IV DRIP
     Route: 041
     Dates: start: 20090305, end: 20090305

REACTIONS (9)
  - BLOOD PRESSURE INCREASED [None]
  - DIZZINESS [None]
  - FEELING ABNORMAL [None]
  - FEELING COLD [None]
  - GASTROENTERITIS VIRAL [None]
  - HEADACHE [None]
  - HYPOPHAGIA [None]
  - HYPOTENSION [None]
  - MENTAL IMPAIRMENT [None]
